FAERS Safety Report 5748816-3 (Version None)
Quarter: 2008Q2

REPORT INFORMATION
  Report Type: 
  Country: None (occurrence: None)
  Receive Date: 20080521
  Receipt Date: 20080409
  Transmission Date: 20081010
  Serious: No
  Sender: FDA-Public Use
  Company Number: TCI2008A01333

PATIENT
  Age: 74 Year
  Sex: Male

DRUGS (5)
  1. LANSOPRAZOLE [Suspect]
     Indication: GASTRIC ULCER
     Dosage: 15 MG (15 MG, 1 IN 1 D)
     Route: 048
     Dates: start: 20080219, end: 20080228
  2. ALLEGRA [Suspect]
     Indication: ARTHROPOD STING
     Dosage: PER ORAL
     Route: 048
     Dates: start: 20080222, end: 20080228
  3. NIFEDIPINE [Suspect]
     Indication: HYPERTENSION
     Route: 048
     Dates: start: 20080222, end: 20080228
  4. PYDOXAL (PYRIDOXAL PHOSPHATE) (TABLETS) [Suspect]
     Indication: ARTHROPOD STING
     Route: 048
     Dates: start: 20080222, end: 20080228
  5. WAKADENIN (FLAVINE ADENINE DINUCLEOTIDE DISODIUM) (PREPARATION FOR ORA [Suspect]
     Indication: ARTHROPOD STING
     Dosage: PER ORAL
     Route: 048
     Dates: start: 20080222, end: 20080228

REACTIONS (2)
  - BINOCULAR EYE MOVEMENT DISORDER [None]
  - DIPLOPIA [None]
